FAERS Safety Report 19501017 (Version 1)
Quarter: 2021Q3

REPORT INFORMATION
  Report Type: Spontaneous
  Country: US (occurrence: US)
  Receive Date: 20210706
  Receipt Date: 20210706
  Transmission Date: 20211014
  Serious: Yes (Other)
  Sender: FDA-Public Use
  Company Number: None

PATIENT
  Age: 29 Year
  Sex: Female
  Weight: 81 kg

DRUGS (2)
  1. METFORMIN [Concomitant]
     Active Substance: METFORMIN HYDROCHLORIDE
  2. MILI [Suspect]
     Active Substance: ETHINYL ESTRADIOL\NORGESTIMATE
     Indication: ABNORMAL UTERINE BLEEDING
     Dosage: ?          QUANTITY:28 TABLET(S);?
     Route: 048
     Dates: start: 20210621, end: 20210625

REACTIONS (8)
  - Mood swings [None]
  - Rash [None]
  - Neck pain [None]
  - Back pain [None]
  - Anxiety [None]
  - Fluid retention [None]
  - Vaginal discharge [None]
  - Pain in jaw [None]

NARRATIVE: CASE EVENT DATE: 20210625
